APPROVED DRUG PRODUCT: KETOROLAC TROMETHAMINE
Active Ingredient: KETOROLAC TROMETHAMINE
Strength: 10MG
Dosage Form/Route: TABLET;ORAL
Application: A075284 | Product #001
Applicant: PLIVA INC
Approved: Jun 23, 1999 | RLD: No | RS: No | Type: DISCN